FAERS Safety Report 18095142 (Version 2)
Quarter: 2020Q4

REPORT INFORMATION
  Report Type: Spontaneous
  Country: JP (occurrence: JP)
  Receive Date: 20200730
  Receipt Date: 20201105
  Transmission Date: 20210113
  Serious: Yes (Hospitalization)
  Sender: FDA-Public Use
  Company Number: JP-JNJFOC-20200734152

PATIENT
  Age: 4 Decade
  Sex: Male

DRUGS (3)
  1. STELARA [Suspect]
     Active Substance: USTEKINUMAB
     Dosage: DOSE UNKNOWN
     Route: 058
  2. STELARA [Suspect]
     Active Substance: USTEKINUMAB
     Dosage: GENETICAL RECOMBINATION:45MG
     Route: 041
  3. STELARA [Suspect]
     Active Substance: USTEKINUMAB
     Indication: CROHN^S DISEASE
     Dosage: GENETICAL RECOMBINATION:130MG
     Route: 041

REACTIONS (1)
  - Malaise [Unknown]
